FAERS Safety Report 17966406 (Version 1)
Quarter: 2020Q2

REPORT INFORMATION
  Report Type: Other
  Country: US (occurrence: US)
  Receive Date: 20200630
  Receipt Date: 20200630
  Transmission Date: 20200714
  Serious: Yes (Death)
  Sender: FDA-Public Use
  Company Number: US-CALIFORNIA DEPARTMENT OF PUBLIC HEALTH-2086912

PATIENT
  Age: 5 Month
  Sex: Male
  Weight: 4.9 kg

DRUGS (14)
  1. FENTANYL. [Concomitant]
     Active Substance: FENTANYL
     Dates: start: 20200507, end: 20200529
  2. ALBUTER OF NEBULIZATION [Concomitant]
     Dates: start: 20200508, end: 20200520
  3. CHILDRENS ACETAMINOPHEN LIQUID [Concomitant]
     Active Substance: ACETAMINOPHEN
     Dates: start: 20200508, end: 20200612
  4. SULFAMETHOXAZOLE AND TRIMETHOPRIM [Concomitant]
     Active Substance: SULFAMETHOXAZOLE\TRIMETHOPRIM
     Dates: start: 20200513, end: 20200516
  5. ATROPINE. [Concomitant]
     Active Substance: ATROPINE
     Route: 042
     Dates: start: 20200508, end: 20200525
  6. LORAZEPAM. [Concomitant]
     Active Substance: LORAZEPAM
     Dates: start: 20200508, end: 20200614
  7. VECURONIUM [Concomitant]
     Active Substance: VECURONIUM BROMIDE
     Dates: start: 20200517, end: 20200525
  8. BABYBIG [Suspect]
     Active Substance: HUMAN BOTULINUM NEUROTOXIN A/B IMMUNE GLOBULIN
     Indication: BOTULISM
     Route: 042
     Dates: start: 20200504, end: 20200504
  9. OXYCODONE. [Concomitant]
     Active Substance: OXYCODONE HYDROCHLORIDE
     Dates: start: 20200511, end: 20200530
  10. PROPOFOL. [Concomitant]
     Active Substance: PROPOFOL
     Dates: start: 20200529, end: 20200529
  11. CHILDRENS ACETAMINOPHEN LIQUID [Concomitant]
     Active Substance: ACETAMINOPHEN
     Dates: start: 20200504, end: 20200504
  12. DEXMEDETOMIDINE. [Concomitant]
     Active Substance: DEXMEDETOMIDINE
     Dates: start: 20200508, end: 20200509
  13. MORPHINE SULFATE. [Concomitant]
     Active Substance: MORPHINE SULFATE
     Dates: start: 20200614, end: 20200615
  14. IMMUNE GLOBULIN 10% IV [Concomitant]
     Dates: start: 20200520, end: 20200521

REACTIONS (2)
  - Spinal muscular atrophy [Fatal]
  - Withdrawal of life support [Fatal]

NARRATIVE: CASE EVENT DATE: 20200615
